FAERS Safety Report 8838317 (Version 2)
Quarter: 2012Q4

REPORT INFORMATION
  Report Type: 
  Country: US (occurrence: US)
  Receive Date: 20121012
  Receipt Date: 20121029
  Transmission Date: 20130627
  Serious: No
  Sender: FDA-Public Use
  Company Number: US-PFIZER INC-2012252289

PATIENT
  Sex: Male

DRUGS (2)
  1. LYRICA [Suspect]
     Dosage: 75 mg, 3x/day
     Dates: start: 2012, end: 20121010
  2. LYRICA [Suspect]
     Dosage: UNK, 1x/day
     Dates: start: 20121010

REACTIONS (2)
  - Pain in extremity [Unknown]
  - Musculoskeletal disorder [Unknown]
